FAERS Safety Report 4592784-7 (Version None)
Quarter: 2005Q1

REPORT INFORMATION
  Report Type: 
  Country: None (occurrence: None)
  Receive Date: 20050222
  Receipt Date: 20050209
  Transmission Date: 20050727
  Serious: Yes (Life-Threatening, Hospitalization)
  Sender: FDA-Public Use
  Company Number: A01200500475

PATIENT
  Age: 76 Year
  Sex: Female

DRUGS (4)
  1. PLAVIX [Suspect]
     Indication: CEREBRAL ISCHAEMIA
     Dosage: 75 MG, ORAL
     Route: 048
     Dates: start: 20040617, end: 20040627
  2. FLEXANE - (HEPARIN-FRACTION, SODIUM SALT)- SOLUTION - 60 MG [Suspect]
     Dosage: 60 MG QD, SUBCUTANEOUS
     Route: 058
     Dates: start: 20040617, end: 20040623
  3. FRAXIPARINA - (NADROPARIN CALCIUM) - SOLUTION 5700 IU [Suspect]
     Dosage: 0.6 ML, SUBCUTANEOUS
     Route: 058
     Dates: start: 20040622, end: 20040627
  4. ADIRO - (ACETYLSALICYLIC ACID) - TABLET - 100 MG [Suspect]
     Dosage: 100 MG QD , ORAL
     Route: 048
     Dates: start: 20040623, end: 20040627

REACTIONS (3)
  - ACUTE RESPIRATORY FAILURE [None]
  - HAEMOGLOBIN DECREASED [None]
  - HAEMOPTYSIS [None]
